FAERS Safety Report 12721408 (Version 2)
Quarter: 2016Q3

REPORT INFORMATION
  Report Type: Spontaneous
  Country: GB (occurrence: GB)
  Receive Date: 20160907
  Receipt Date: 20160913
  Transmission Date: 20161109
  Serious: Yes (Other)
  Sender: FDA-Public Use
  Company Number: GB-009507513-1609GBR000020

PATIENT
  Age: 69 Year
  Sex: Female
  Weight: 71.4 kg

DRUGS (19)
  1. ASPIRIN. [Concomitant]
     Active Substance: ASPIRIN
     Dosage: 10 MG, UNK
     Dates: start: 20160712
  2. CETIRIZINE HYDROCHLORIDE. [Concomitant]
     Active Substance: CETIRIZINE HYDROCHLORIDE
     Dosage: 10 MG, UNK
     Dates: start: 20160720
  3. ASPIRIN. [Concomitant]
     Active Substance: ASPIRIN
     Dosage: 10 MG, UNK
     Dates: start: 20160720
  4. BETNOVATE [Concomitant]
     Active Substance: BETAMETHASONE
     Dates: start: 20160729
  5. ATORVASTATIN [Concomitant]
     Active Substance: ATORVASTATIN
     Dosage: 20 MG, UNK
     Dates: start: 20160712
  6. BENDROFLUMETHIAZIDE [Concomitant]
     Active Substance: BENDROFLUMETHIAZIDE
     Dosage: 2.5 MG, UNK
     Dates: start: 20160712
  7. BISOPROLOL [Concomitant]
     Active Substance: BISOPROLOL
     Dosage: 10 MG, UNK
     Dates: start: 20160712
  8. HYDROCORTISONE. [Concomitant]
     Active Substance: HYDROCORTISONE
     Dosage: UNK
     Dates: start: 20160712
  9. CALAMINE [Concomitant]
     Active Substance: CALAMINE\FERRIC OXIDE RED\ZINC OXIDE
     Dosage: 75 MG, UNK
     Dates: start: 20160712
  10. ASPIRIN. [Concomitant]
     Active Substance: ASPIRIN
     Dosage: 2.5 MG, UNK
     Dates: start: 20160712
  11. CROMOLYN SODIUM. [Concomitant]
     Active Substance: CROMOLYN SODIUM
     Dates: start: 20160712
  12. LOSARTAN POTASSIUM. [Suspect]
     Active Substance: LOSARTAN POTASSIUM
     Dosage: 50 MILLIGRAM DAILY;
     Route: 048
  13. CALAMINE [Concomitant]
     Active Substance: CALAMINE\FERRIC OXIDE RED\ZINC OXIDE
     Dosage: UNK
     Dates: start: 20160729
  14. ASPIRIN. [Concomitant]
     Active Substance: ASPIRIN
     Dosage: 3.75 MG, UNK
     Dates: start: 20160729
  15. CHLORPHENAMINE [Concomitant]
     Active Substance: CHLORPHENIRAMINE MALEATE
     Dosage: 10 MG, UNK
     Dates: start: 20160729
  16. LOSARTAN POTASSIUM. [Suspect]
     Active Substance: LOSARTAN POTASSIUM
     Indication: HYPERTENSION
     Dosage: 75 MILLIGRAM DAILY;
     Route: 048
     Dates: start: 20160721
  17. ASPIRIN. [Concomitant]
     Active Substance: ASPIRIN
     Dosage: 75 MG, UNK
     Dates: start: 20160712
  18. TILDIEM [Concomitant]
     Active Substance: DILTIAZEM HYDROCHLORIDE
     Dosage: 200 MG, UNK
     Dates: start: 20160712
  19. ZOPICLONE [Concomitant]
     Active Substance: ZOPICLONE
     Dosage: 3.75 MG, UNK
     Dates: start: 20160729

REACTIONS (3)
  - Rash generalised [Recovering/Resolving]
  - Swelling face [Recovering/Resolving]
  - Paraesthesia oral [Recovering/Resolving]
